FAERS Safety Report 7670969-0 (Version None)
Quarter: 2011Q3

REPORT INFORMATION
  Report Type: 
  Country: None (occurrence: None)
  Receive Date: 20110809
  Receipt Date: 20110805
  Transmission Date: 20111222
  Serious: No
  Sender: FDA-Public Use
  Company Number: US-PFIZER INC-2011179724

PATIENT
  Age: 74 Year
  Sex: Male
  Weight: 95.692 kg

DRUGS (3)
  1. VIAGRA [Concomitant]
     Dosage: UNK
     Dates: start: 20110101
  2. REVATIO [Suspect]
     Indication: PULMONARY HYPERTENSION
     Dosage: UNK
     Dates: start: 20110701, end: 20110101
  3. VIAGRA [Concomitant]
     Indication: PULMONARY HYPERTENSION
     Dosage: UNK
     Dates: end: 20110701

REACTIONS (1)
  - RASH [None]
